FAERS Safety Report 10754372 (Version 1)
Quarter: 2015Q1

REPORT INFORMATION
  Report Type: Spontaneous
  Country: GB (occurrence: GB)
  Receive Date: 20150202
  Receipt Date: 20150202
  Transmission Date: 20150721
  Serious: Yes (Other)
  Sender: FDA-Public Use
  Company Number: GB-ABBVIE-15K-167-1340961-00

PATIENT
  Age: 32 Year
  Sex: Male
  Weight: 70.3 kg

DRUGS (1)
  1. ADALIMUMAB [Suspect]
     Active Substance: ADALIMUMAB
     Indication: ARTHRITIS
     Route: 058
     Dates: start: 20140427, end: 20140823

REACTIONS (2)
  - Suicidal ideation [Unknown]
  - Depression [Recovering/Resolving]

NARRATIVE: CASE EVENT DATE: 20140716
